FAERS Safety Report 17839084 (Version 1)
Quarter: 2020Q2

REPORT INFORMATION
  Report Type: Spontaneous
  Country: US (occurrence: US)
  Receive Date: 20200529
  Receipt Date: 20200529
  Transmission Date: 20200714
  Serious: Yes (Other)
  Sender: FDA-Public Use
  Company Number: US-AUROBINDO-AUR-APL-2020-026538

PATIENT
  Age: 79 Year
  Sex: Female

DRUGS (1)
  1. METRONIDAZOLE. [Suspect]
     Active Substance: METRONIDAZOLE
     Indication: PRODUCT USED FOR UNKNOWN INDICATION
     Dosage: UNK
     Route: 065

REACTIONS (10)
  - Disorientation [Unknown]
  - Gait disturbance [Unknown]
  - Neurotoxicity [Unknown]
  - Cerebellar syndrome [Recovered/Resolved]
  - Paraesthesia [Unknown]
  - Cerebellar ataxia [Unknown]
  - Vertigo [Unknown]
  - Dysarthria [Unknown]
  - Dysmetria [Unknown]
  - Dysstasia [Unknown]
